FAERS Safety Report 15334147 (Version 1)
Quarter: 2018Q3

REPORT INFORMATION
  Report Type: Report from Study
  Country: US (occurrence: US)
  Receive Date: 20180830
  Receipt Date: 20180830
  Transmission Date: 20181010
  Serious: Yes (Other)
  Sender: FDA-Public Use
  Company Number: PHEH2018US034932

PATIENT
  Sex: Female

DRUGS (1)
  1. AFINITOR [Suspect]
     Active Substance: EVEROLIMUS
     Indication: CHEMOTHERAPY MULTIPLE AGENTS SYSTEMIC
     Route: 048

REACTIONS (5)
  - Disease progression [Unknown]
  - Spinal fracture [Unknown]
  - General physical health deterioration [Unknown]
  - Bone cancer [Unknown]
  - Pulmonary embolism [Unknown]
